FAERS Safety Report 24161121 (Version 1)
Quarter: 2024Q3

REPORT INFORMATION
  Report Type: Spontaneous
  Country: NL (occurrence: NL)
  Receive Date: 20240801
  Receipt Date: 20240801
  Transmission Date: 20241017
  Serious: Yes (Other)
  Sender: SANOFI AVENTIS
  Company Number: None

PATIENT
  Age: 61 Year
  Sex: Male

DRUGS (3)
  1. AFLIBERCEPT [Suspect]
     Active Substance: AFLIBERCEPT
     Indication: Macular oedema
     Dosage: 2MG
  2. DORZOLAMIDE HYDROCHLORIDE\TIMOLOL MALEATE [Concomitant]
     Active Substance: DORZOLAMIDE HYDROCHLORIDE\TIMOLOL MALEATE
     Dosage: UNK, EYE DROPS, 5/20 MG/ML (MILLIGRAMS PER MILLILITER)
  3. LATANOPROST [Concomitant]
     Active Substance: LATANOPROST
     Dosage: UNK, EYE DROPS, 50 ?G/ML (MICROGRAMS PER MILLILITER)

REACTIONS (1)
  - Uveitis [Unknown]
